FAERS Safety Report 16949895 (Version 1)
Quarter: 2019Q4

REPORT INFORMATION
  Report Type: Spontaneous
  Country: AT (occurrence: AT)
  Receive Date: 20191023
  Receipt Date: 20191023
  Transmission Date: 20200122
  Serious: Yes (Other)
  Sender: FDA-Public Use
  Company Number: AT-ASTRAZENECA-2019SF41646

PATIENT
  Age: 32 Year
  Sex: Male

DRUGS (14)
  1. NEUROTOP RET [Concomitant]
  2. TARDYFERON FOL [Concomitant]
     Active Substance: FERROUS SULFATE\FOLIC ACID
  3. FORXIGA [Suspect]
     Active Substance: DAPAGLIFLOZIN
     Indication: DIABETES MELLITUS
     Route: 048
  4. ACIMED [Concomitant]
  5. XIGDUO XR [Suspect]
     Active Substance: DAPAGLIFLOZIN PROPANEDIOL\METFORMIN HYDROCHLORIDE
     Indication: DIABETES MELLITUS
     Route: 048
  6. EFECTIN ER [Concomitant]
     Active Substance: VENLAFAXINE HYDROCHLORIDE
  7. SORTIS [Concomitant]
     Active Substance: ATORVASTATIN
  8. HYDROCORTONE [Concomitant]
     Active Substance: HYDROCORTISONE
  9. METFORMIN HEX [Concomitant]
  10. MINIRIN [Concomitant]
     Active Substance: DESMOPRESSIN ACETATE
  11. NEXIUM MSR [Concomitant]
  12. ALDACTONE [Concomitant]
     Active Substance: SPIRONOLACTONE
  13. KALIORAL FRE [Concomitant]
  14. MAXI-KALZ [Concomitant]

REACTIONS (2)
  - Haematuria [Recovered/Resolved]
  - Polyuria [Recovered/Resolved]

NARRATIVE: CASE EVENT DATE: 2007
